FAERS Safety Report 9869031 (Version 1)
Quarter: 2014Q1

REPORT INFORMATION
  Report Type: Spontaneous
  Country: TR (occurrence: TR)
  Receive Date: 20140205
  Receipt Date: 20140205
  Transmission Date: 20141002
  Serious: Yes (Other)
  Sender: FDA-Public Use
  Company Number: TR-ORION CORPORATION ORION PHARMA-ENTC2014-0033

PATIENT
  Age: 52 Year
  Sex: Female

DRUGS (5)
  1. LEVODOPA-CARBIDOPA-ENTACAPONE [Suspect]
     Indication: PARKINSON^S DISEASE
     Route: 065
  2. LEVODOPA-CARBIDOPA-ENTACAPONE [Suspect]
     Route: 065
  3. LEVODOPA-CARBIDOPA-ENTACAPONE [Suspect]
     Route: 065
  4. PRAMIPEXOLE [Suspect]
     Route: 065
  5. RASAGILINE [Suspect]
     Route: 065

REACTIONS (10)
  - Drug ineffective [Unknown]
  - Bradykinesia [Unknown]
  - Dizziness postural [Unknown]
  - Dysphonia [Unknown]
  - Masked facies [Unknown]
  - Torticollis [Recovering/Resolving]
  - Muscle rigidity [Unknown]
  - Orthostatic hypotension [Unknown]
  - Cognitive disorder [Unknown]
  - Gait disturbance [Unknown]
